FAERS Safety Report 5692256-2 (Version None)
Quarter: 2008Q2

REPORT INFORMATION
  Report Type: 
  Country: None (occurrence: None)
  Receive Date: 20080402
  Receipt Date: 20080321
  Transmission Date: 20081010
  Serious: Yes (Hospitalization)
  Sender: FDA-Public Use
  Company Number: CA-PFIZER INC-2008026607

PATIENT
  Age: 59 Year
  Sex: Male
  Weight: 123 kg

DRUGS (1)
  1. SU-011,248 [Suspect]
     Indication: MESOTHELIOMA
     Route: 048

REACTIONS (2)
  - LOCALISED OEDEMA [None]
  - OEDEMA GENITAL [None]
